FAERS Safety Report 12573871 (Version 1)
Quarter: 2016Q3

REPORT INFORMATION
  Report Type: Spontaneous
  Country: US (occurrence: None)
  Receive Date: 20160718
  Receipt Date: 20160718
  Transmission Date: 20161109
  Serious: No
  Sender: FDA-Public Use
  Company Number: DL2016-0227

PATIENT
  Age: 18 Year
  Sex: Female

DRUGS (2)
  1. MISOPROSTOL TABLETS, 200 MCG [Suspect]
     Active Substance: MISOPROSTOL
     Dosage: 800 UCG, BUCCAL, DID NOT TAKE
     Route: 002
  2. MIFEPRISTONE TABLETS, 200 MG (DANCO LABS) [Suspect]
     Active Substance: MIFEPRISTONE
     Indication: ABORTION INDUCED
     Route: 048
     Dates: start: 20160413

REACTIONS (1)
  - Pregnancy [None]

NARRATIVE: CASE EVENT DATE: 20160418
